FAERS Safety Report 7631584-8 (Version None)
Quarter: 2011Q3

REPORT INFORMATION
  Report Type: 
  Country: None (occurrence: None)
  Receive Date: 20110701
  Receipt Date: 20101202
  Transmission Date: 20111222
  Serious: Yes (Other)
  Sender: FDA-Public Use
  Company Number: 7030394

PATIENT
  Age: 48 Year
  Sex: Female

DRUGS (2)
  1. TRILEPTAL [Concomitant]
  2. REBIF [Suspect]
     Indication: MULTIPLE SCLEROSIS
     Dosage: 44 MCG, 3 IN 1 WK, SUBCUTANEOUS
     Route: 058
     Dates: start: 20101101

REACTIONS (2)
  - CONVULSION [None]
  - INJECTION SITE ERYTHEMA [None]
